FAERS Safety Report 16591713 (Version 12)
Quarter: 2020Q2

REPORT INFORMATION
  Report Type: Spontaneous
  Country: IN (occurrence: IN)
  Receive Date: 20190718
  Receipt Date: 20200616
  Transmission Date: 20200713
  Serious: Yes (Other)
  Sender: FDA-Public Use
  Company Number: IN-PFIZER INC-2019169460

PATIENT
  Age: 51 Year
  Sex: Female
  Weight: 60 kg

DRUGS (3)
  1. LETROZOLE. [Concomitant]
     Active Substance: LETROZOLE
     Dosage: 2.5 MG, ONCE DAILY (1-0-0 X 30DAYS; TAB CCM 0-1-0 FOR 30DAYS)
  2. PALBACE [Suspect]
     Active Substance: PALBOCICLIB
     Indication: BREAST CANCER METASTATIC
     Dosage: 125 MG, CYCLIC (ONCE DAILY, 21 DAYS ON, 7 DAYS OFF/1-0-0 X 21 DAYS ON 7 DAYS OFF)
     Route: 048
     Dates: start: 20180615
  3. CCM [Concomitant]
     Dosage: UNK, 1X/DAY (0-1-0 FOR 30DAYS (FOR 4 WEEKS))

REACTIONS (4)
  - Pericardial effusion malignant [Not Recovered/Not Resolved]
  - Pleural effusion [Unknown]
  - Neutrophil percentage decreased [Unknown]
  - Haemoglobin decreased [Recovering/Resolving]
